FAERS Safety Report 8625848-9 (Version None)
Quarter: 2012Q3

REPORT INFORMATION
  Report Type: 
  Country: None (occurrence: None)
  Receive Date: 20120827
  Receipt Date: 20120823
  Transmission Date: 20120928
  Serious: Yes (Death)
  Sender: FDA-Public Use
  Company Number: US-ROCHE-1107827

PATIENT
  Age: 79 Year
  Sex: Male

DRUGS (1)
  1. XELODA [Suspect]
     Indication: LUNG NEOPLASM MALIGNANT
     Route: 048
     Dates: start: 20110221, end: 20110101

REACTIONS (1)
  - DEATH [None]
